FAERS Safety Report 5663514-2 (Version None)
Quarter: 2008Q1

REPORT INFORMATION
  Report Type: 
  Country: None (occurrence: None)
  Receive Date: 20080313
  Receipt Date: 20080305
  Transmission Date: 20080703
  Serious: Yes (Hospitalization)
  Sender: FDA-Public Use
  Company Number: AU-GENENTECH-252747

PATIENT
  Sex: Female
  Weight: 66 kg

DRUGS (10)
  1. RITUXAN [Suspect]
     Indication: DRUG USE FOR UNKNOWN INDICATION
     Dosage: UNK, UNKNOWN
     Route: 042
  2. FLUDARABINE [Suspect]
     Indication: DRUG USE FOR UNKNOWN INDICATION
     Dosage: 43 MG, QD
     Route: 042
     Dates: start: 20070501, end: 20070605
  3. CYCLOPHOSPHAMIDE [Suspect]
     Indication: DRUG USE FOR UNKNOWN INDICATION
     Dosage: 43 MG, UNK
     Route: 042
     Dates: start: 20070501, end: 20070607
  4. BETALOC [Concomitant]
     Indication: DRUG USE FOR UNKNOWN INDICATION
  5. ATACAND HCT [Concomitant]
     Indication: DRUG USE FOR UNKNOWN INDICATION
  6. CARDIPRIN 100 [Concomitant]
     Indication: DRUG USE FOR UNKNOWN INDICATION
  7. VALTREX [Concomitant]
     Indication: DRUG USE FOR UNKNOWN INDICATION
  8. ALLOPURINOL [Concomitant]
     Indication: DRUG USE FOR UNKNOWN INDICATION
  9. DAPSONE [Concomitant]
     Indication: DRUG USE FOR UNKNOWN INDICATION
  10. URAL [Concomitant]
     Indication: DRUG USE FOR UNKNOWN INDICATION

REACTIONS (3)
  - ANAEMIA [None]
  - FEBRILE NEUTROPENIA [None]
  - WHITE BLOOD CELL COUNT DECREASED [None]
